FAERS Safety Report 6241737-1 (Version None)
Quarter: 2009Q2

REPORT INFORMATION
  Report Type: 
  Country: None (occurrence: None)
  Receive Date: 20090623
  Receipt Date: 20070313
  Transmission Date: 20091009
  Serious: Yes (Hospitalization, Congenital Anomaly, Other)
  Sender: FDA-Public Use
  Company Number: NL-ROCHE-478696

PATIENT
  Sex: Male
  Weight: 2.3 kg

DRUGS (7)
  1. MYCOPHENOLATE MOFETIL [Suspect]
     Route: 064
  2. DIAZEPAM [Suspect]
     Route: 064
  3. PREDNISOLONE [Suspect]
     Route: 064
  4. HALOPERIDOL [Suspect]
     Route: 064
  5. OLANZAPINE [Concomitant]
  6. NITRAZEPAM [Concomitant]
     Indication: HYPNOTHERAPY
  7. METHYLDOPA [Concomitant]
     Indication: HYPERTENSION

REACTIONS (6)
  - ANAEMIA NEONATAL [None]
  - BONE MARROW FAILURE [None]
  - DRUG WITHDRAWAL SYNDROME NEONATAL [None]
  - EAR MALFORMATION [None]
  - HYDROPS FOETALIS [None]
  - NEONATAL RESPIRATORY DISTRESS SYNDROME [None]
